FAERS Safety Report 26010065 (Version 3)
Quarter: 2025Q4

REPORT INFORMATION
  Report Type: Spontaneous
  Country: BR (occurrence: None)
  Receive Date: 20251107
  Receipt Date: 20251212
  Transmission Date: 20260117
  Serious: Yes (Other)
  Sender: CHIESI
  Company Number: BR-CHIESI-2025CHF07844

PATIENT
  Age: 34 Year
  Sex: Male
  Weight: 68 kg

DRUGS (11)
  1. MYALEPT [Suspect]
     Active Substance: METRELEPTIN
     Indication: Congenital generalised lipodystrophy
     Dosage: 1 MILLILITER
     Route: 065
  2. Glyphage [Concomitant]
     Indication: Diabetes mellitus
     Dosage: 1 GRAM, BID
  3. Sitglu [Concomitant]
     Indication: Diabetes mellitus
     Dosage: UNK
  4. HYDROCHLOROTHIAZIDE [Concomitant]
     Active Substance: HYDROCHLOROTHIAZIDE
     Indication: Urine calcium decreased
     Dosage: UNK
  5. DAPAGLIFLOZIN [Concomitant]
     Active Substance: DAPAGLIFLOZIN
     Indication: Diabetes mellitus
     Dosage: UNK
  6. Desduo [Concomitant]
     Indication: Anxiety
     Dosage: UNK
  7. Zetron [Concomitant]
     Indication: Anxiety
     Dosage: UNK
  8. ROSUVASTATIN [Concomitant]
     Active Substance: ROSUVASTATIN
     Indication: Blood cholesterol
     Dosage: UNK
  9. DOXAZOSIN [Concomitant]
     Active Substance: DOXAZOSIN MESYLATE
     Indication: Dysuria
     Dosage: UNK
  10. ASPIRIN\DIHYDROXYALUMINUM AMINOACETATE ANHYDROUS\MAGNESIUM CARBONATE [Concomitant]
     Active Substance: ASPIRIN\DIHYDROXYALUMINUM AMINOACETATE ANHYDROUS\MAGNESIUM CARBONATE
     Indication: Blood cholesterol
     Dosage: UNK
  11. BUPROPION [Concomitant]
     Active Substance: BUPROPION
     Indication: Product used for unknown indication
     Dosage: UNK UNK, QD
     Dates: start: 202503

REACTIONS (22)
  - Rectal haemorrhage [Unknown]
  - Insomnia [Unknown]
  - Blood glucose increased [Unknown]
  - Ill-defined disorder [Unknown]
  - Weight increased [Unknown]
  - Abdominal distension [Recovered/Resolved]
  - Flatulence [Recovered/Resolved]
  - Polyp [Unknown]
  - Eructation [Unknown]
  - Burning sensation [Unknown]
  - Mental disorder [Unknown]
  - Anxiety [Recovering/Resolving]
  - Constipation [Unknown]
  - Influenza like illness [Not Recovered/Not Resolved]
  - Injection site haematoma [Unknown]
  - Treatment noncompliance [Unknown]
  - Wrong technique in product usage process [Unknown]
  - Product dose omission issue [Unknown]
  - Product dose omission issue [Unknown]
  - Device difficult to use [Unknown]
  - Product dose omission issue [Unknown]
  - Needle issue [Not Recovered/Not Resolved]

NARRATIVE: CASE EVENT DATE: 20250728
